FAERS Safety Report 7311605-2 (Version None)
Quarter: 2011Q1

REPORT INFORMATION
  Report Type: 
  Country: None (occurrence: None)
  Receive Date: 20110224
  Receipt Date: 20110217
  Transmission Date: 20110831
  Serious: Yes (Death, Life-Threatening, Hospitalization, Other)
  Sender: FDA-Public Use
  Company Number: JP-CELGENEUS-087-21880-10110864

PATIENT
  Sex: Female

DRUGS (8)
  1. LENADEX [Suspect]
     Indication: MULTIPLE MYELOMA
     Route: 048
     Dates: start: 20101012, end: 20101015
  2. MEROPEN [Suspect]
     Indication: INFECTION
     Route: 065
  3. ASPIRIN [Concomitant]
     Indication: PROPHYLAXIS
     Route: 048
     Dates: start: 20101012, end: 20101027
  4. REVLIMID [Suspect]
     Indication: MULTIPLE MYELOMA
     Route: 048
     Dates: start: 20101012, end: 20101027
  5. CRAVIT [Suspect]
     Indication: PROPHYLAXIS
     Route: 048
     Dates: start: 20101026, end: 20101030
  6. MEROPEN [Suspect]
  7. TEICOPLANIN [Suspect]
     Route: 065
  8. CRAVIT [Suspect]
     Indication: INFECTION

REACTIONS (5)
  - HEPATIC FAILURE [None]
  - STAPHYLOCOCCAL SEPSIS [None]
  - THROMBOCYTOPENIA [None]
  - PYREXIA [None]
  - NEUTROPENIA [None]
